FAERS Safety Report 8024826-0 (Version None)
Quarter: 2012Q1

REPORT INFORMATION
  Report Type: 
  Country: None (occurrence: None)
  Receive Date: 20120105
  Receipt Date: 20120103
  Transmission Date: 20120608
  Serious: Yes (Hospitalization, Other)
  Sender: FDA-Public Use
  Company Number: US-JNJFOC-20120100643

PATIENT
  Sex: Female
  Weight: 92.99 kg

DRUGS (13)
  1. POTASSIUM CHLORIDE [Concomitant]
     Indication: BLOOD POTASSIUM DECREASED
     Route: 048
     Dates: start: 19950101
  2. TRICOR [Concomitant]
     Indication: BLOOD CHOLESTEROL INCREASED
     Route: 048
     Dates: start: 20000101
  3. HYDROCHLOROTHIAZIDE [Concomitant]
     Indication: HYPERTENSION
     Route: 048
     Dates: start: 19900101
  4. ZOFRAN [Concomitant]
     Indication: NAUSEA
     Route: 048
     Dates: start: 20010101
  5. RAMIPRIL [Concomitant]
     Indication: HYPERTENSION
     Route: 048
     Dates: start: 20051201
  6. HYDROCODONE [Concomitant]
     Indication: BREAKTHROUGH PAIN
     Route: 048
  7. FLUOROURACIL [Concomitant]
     Indication: SKIN CANCER
     Route: 061
  8. ZANTAC [Concomitant]
     Indication: GASTRIC ULCER
     Route: 048
     Dates: start: 20010101
  9. LYRICA [Concomitant]
     Indication: NEURALGIA
     Route: 048
     Dates: start: 20010101
  10. FOLTX [Concomitant]
     Indication: CARDIAC DISORDER
     Route: 048
     Dates: start: 20030101
  11. DURAGESIC-100 [Suspect]
     Indication: PRODUCT USED FOR UNKNOWN INDICATION
     Route: 062
     Dates: start: 20090701
  12. TORADOL [Concomitant]
     Indication: PAIN
     Dosage: EVERY 4-6 HRS
     Route: 048
     Dates: start: 20010101
  13. PREDNISONE TAB [Concomitant]
     Indication: LIVER DISORDER
     Route: 048
     Dates: start: 19930101

REACTIONS (14)
  - SQUAMOUS CELL CARCINOMA [None]
  - OSTEOARTHRITIS [None]
  - FOOT FRACTURE [None]
  - ADVERSE EVENT [None]
  - VITAMIN D DECREASED [None]
  - HIP FRACTURE [None]
  - FALL [None]
  - BLOOD CHOLESTEROL INCREASED [None]
  - DRUG INEFFECTIVE [None]
  - DIABETES MELLITUS [None]
  - WRONG TECHNIQUE IN DRUG USAGE PROCESS [None]
  - PHARYNGEAL OEDEMA [None]
  - DEHYDROEPIANDROSTERONE DECREASED [None]
  - HEADACHE [None]
